FAERS Safety Report 5321064-7 (Version None)
Quarter: 2007Q2

REPORT INFORMATION
  Report Type: 
  Country: None (occurrence: None)
  Receive Date: 20070504
  Receipt Date: 20070418
  Transmission Date: 20071010
  Serious: Yes (Other)
  Sender: FDA-Public Use
  Company Number: DSA_29797_2007

PATIENT
  Sex: Female
  Weight: 80.7403 kg

DRUGS (1)
  1. VASOTEC [Suspect]
     Indication: HYPERTENSION
     Dosage: 5 MG TID, ORAL; (18 YEARS UNTIL 12/??/2006)
     Route: 048
     Dates: start: 20061201, end: 20070418

REACTIONS (6)
  - BLOOD PRESSURE INCREASED [None]
  - DIZZINESS [None]
  - HEADACHE [None]
  - INSOMNIA [None]
  - PALPITATIONS [None]
  - THERAPEUTIC RESPONSE UNEXPECTED WITH DRUG SUBSTITUTION [None]
